FAERS Safety Report 9529379 (Version 3)
Quarter: 2013Q3

REPORT INFORMATION
  Report Type: Spontaneous
  Country: JP (occurrence: JP)
  Receive Date: 20130917
  Receipt Date: 20130926
  Transmission Date: 20140515
  Serious: Yes (Other)
  Sender: FDA-Public Use
  Company Number: JP-UCBSA-094781

PATIENT
  Age: 74 Year
  Sex: Male
  Weight: 55 kg

DRUGS (2)
  1. E KEPPRA [Suspect]
     Indication: EPILEPSY
     Route: 048
     Dates: start: 20121025, end: 20130613
  2. MAGMITT [Concomitant]
     Dosage: DAILY DOSE: 660 MG
     Route: 048
     Dates: start: 20121012

REACTIONS (1)
  - Torticollis [Recovered/Resolved]
